FAERS Safety Report 6607056-6 (Version None)
Quarter: 2010Q1

REPORT INFORMATION
  Report Type: 
  Country: None (occurrence: None)
  Receive Date: 20100219
  Receipt Date: 20100209
  Transmission Date: 20100710
  Serious: Yes (Other)
  Sender: FDA-Public Use
  Company Number: 231397J10USA

PATIENT
  Age: 49 Year
  Sex: Female

DRUGS (7)
  1. REBIF [Suspect]
     Indication: MULTIPLE SCLEROSIS
     Dosage: 44 MCG, 3 IN 1 WEEKS, SUBCUTANEOUS
     Route: 058
     Dates: start: 20090408
  2. ADVIL LIQUI-GELS [Concomitant]
  3. SYNTHROID [Concomitant]
  4. LITHIUM CARBONATE [Concomitant]
  5. OXYBUTYNIN CHLORIDE [Concomitant]
  6. CLONAZEPAM [Concomitant]
  7. METFORMIN HCL [Concomitant]

REACTIONS (4)
  - EXOSTOSIS [None]
  - FALL [None]
  - MUSCULOSKELETAL PAIN [None]
  - ROTATOR CUFF SYNDROME [None]
